FAERS Safety Report 10083858 (Version 4)
Quarter: 2014Q2

REPORT INFORMATION
  Report Type: Report from Study
  Country: CA (occurrence: CA)
  Receive Date: 20140417
  Receipt Date: 20140612
  Transmission Date: 20141212
  Serious: Yes (Other)
  Sender: FDA-Public Use
  Company Number: PHHY2013CA089649

PATIENT
  Sex: Male

DRUGS (4)
  1. SANDOSTATIN LAR [Suspect]
     Indication: NEUROENDOCRINE TUMOUR
     Dosage: 30 MG, EVERY 4 WEEKS
     Route: 030
     Dates: start: 20130617
  2. SANDOSTATIN LAR [Suspect]
     Indication: METASTASES TO LUNG
  3. JANUMET [Concomitant]
     Dosage: UNK UKN, UNK
  4. JANUMET [Concomitant]
     Dosage: 850 MG, UNK

REACTIONS (5)
  - General physical health deterioration [Unknown]
  - Blood pressure increased [Unknown]
  - Oropharyngeal pain [Unknown]
  - Nasal congestion [Unknown]
  - Blood glucose increased [Unknown]
